FAERS Safety Report 5451619-0 (Version None)
Quarter: 2007Q3

REPORT INFORMATION
  Report Type: 
  Country: None (occurrence: None)
  Receive Date: 20070913
  Receipt Date: 20070910
  Transmission Date: 20080115
  Serious: Yes (Hospitalization, Disabling)
  Sender: FDA-Public Use
  Company Number: GB-BOEHRINGER INGELHEIM PHARMACEUTICALS, INC.-2007-UK-01425UK

PATIENT
  Age: 53 Year
  Sex: Female

DRUGS (12)
  1. VIRAMUNE [Suspect]
     Indication: ACUTE HIV INFECTION
     Dosage: 200MG, TWICE A DAY
     Route: 048
     Dates: start: 20070310, end: 20070501
  2. TRIZIVIR [Concomitant]
     Indication: HIV INFECTION
  3. AMITRIPTYLINE HCL [Concomitant]
     Route: 048
     Dates: start: 20070508
  4. FRAGMIN [Concomitant]
     Route: 058
     Dates: start: 20070504
  5. GABAPENTIN [Concomitant]
     Route: 048
     Dates: start: 20070504, end: 20070508
  6. GABAPENTIN [Concomitant]
     Dosage: 300G, 3 TIMES A DAY
     Route: 048
     Dates: start: 20070420, end: 20070427
  7. KALETRA [Concomitant]
     Dosage: 2DF, TWICE A DAY
     Route: 048
     Dates: start: 20070501
  8. KIVEXA [Concomitant]
     Route: 048
     Dates: start: 20070310
  9. LACTULOSE [Concomitant]
     Dosage: 10MG 2 TIMES A DAY
     Route: 048
     Dates: start: 20070414
  10. SENNA [Concomitant]
     Route: 048
     Dates: start: 20070414
  11. SEPTRIN [Concomitant]
     Route: 048
     Dates: end: 20070605
  12. TEGRETOL [Concomitant]
     Route: 048
     Dates: start: 20070414, end: 20070420

REACTIONS (9)
  - ABDOMINAL PAIN [None]
  - ASTHENIA [None]
  - BACK PAIN [None]
  - DYSPHAGIA [None]
  - GUILLAIN-BARRE SYNDROME [None]
  - HYPOAESTHESIA [None]
  - HYPOAESTHESIA FACIAL [None]
  - MYALGIA [None]
  - SENSORY DISTURBANCE [None]
